FAERS Safety Report 16857268 (Version 1)
Quarter: 2019Q3

REPORT INFORMATION
  Report Type: Spontaneous
  Country: US (occurrence: US)
  Receive Date: 20190926
  Receipt Date: 20190926
  Transmission Date: 20191005
  Serious: No
  Sender: FDA-Public Use
  Company Number: US-ASSERTIO THERAPEUTICS, INC.-US-2018DEP001755

PATIENT

DRUGS (8)
  1. TRAMADOL. [Concomitant]
     Active Substance: TRAMADOL
     Dosage: 50 MG, BID
     Dates: start: 2018
  2. GRALISE [Suspect]
     Active Substance: GABAPENTIN
     Dosage: TITRATED DOWN TO 1800MG DAILY
     Route: 048
  3. GABAPENTIN. [Concomitant]
     Active Substance: GABAPENTIN
     Indication: PRODUCT USED FOR UNKNOWN INDICATION
     Dosage: 300-600 MG AT DAYTIME
  4. TRAMADOL. [Concomitant]
     Active Substance: TRAMADOL
     Indication: PAIN
     Dosage: 50 MG, IN THE MORNING
     Dates: start: 2018, end: 2018
  5. GRALISE [Suspect]
     Active Substance: GABAPENTIN
     Dosage: TITRATED DOWN TO 2100MG DAILY
     Route: 048
  6. GRALISE [Suspect]
     Active Substance: GABAPENTIN
     Dosage: TITRATED UP TO 2400MG ONCE DAILY
     Route: 048
  7. BACLOFEN. [Concomitant]
     Active Substance: BACLOFEN
     Indication: PRODUCT USED FOR UNKNOWN INDICATION
     Dosage: 40-60 MG
  8. GRALISE [Suspect]
     Active Substance: GABAPENTIN
     Indication: PAIN
     Dosage: TITRATED UP TO 3000MG DAILY
     Route: 048
     Dates: start: 2015

REACTIONS (3)
  - Drug ineffective for unapproved indication [Unknown]
  - Overdose [Unknown]
  - Drug titration error [Unknown]

NARRATIVE: CASE EVENT DATE: 2015
